FAERS Safety Report 22962282 (Version 4)
Quarter: 2023Q4

REPORT INFORMATION
  Report Type: Report from Study
  Country: CN (occurrence: None)
  Receive Date: 20230920
  Receipt Date: 20231002
  Transmission Date: 20240110
  Serious: Yes (Hospitalization)
  Sender: FDA-Public Use
  Company Number: CN-Eisai Medical Research-EC-2023-148886

PATIENT
  Age: 60 Year
  Sex: Male
  Weight: 74.4 kg

DRUGS (8)
  1. LENVATINIB [Suspect]
     Active Substance: LENVATINIB
     Indication: Clear cell renal cell carcinoma
     Dosage: STARTING DOSE 20MG FLUCTUATED DOSAGE
     Route: 048
     Dates: start: 20230510, end: 20230906
  2. LENVATINIB [Suspect]
     Active Substance: LENVATINIB
     Dosage: STARTING DOSE 14MG FLUCTUATED DOSAGE
     Route: 048
     Dates: start: 20230915
  3. QUAVONLIMAB [Suspect]
     Active Substance: QUAVONLIMAB
     Indication: Clear cell renal cell carcinoma
     Dosage: QUAVONLIMAB (+) PEMBROLIZUMAB 25 MG/400MG
     Route: 042
     Dates: start: 20230510
  4. ACARBOSE [Concomitant]
     Active Substance: ACARBOSE
     Dates: start: 202006
  5. AMLODIPINE BESYLATE [Concomitant]
     Active Substance: AMLODIPINE BESYLATE
     Dates: start: 20230604
  6. INSULIN ASPART [Concomitant]
     Active Substance: INSULIN ASPART
     Dates: start: 20230731
  7. INSULIN ASPART\INSULIN DEGLUDEC [Concomitant]
     Active Substance: INSULIN ASPART\INSULIN DEGLUDEC
     Dates: start: 20230731
  8. PEMBROLIZUMAB [Suspect]
     Active Substance: PEMBROLIZUMAB

REACTIONS (1)
  - Scrotal infection [Recovered/Resolved]

NARRATIVE: CASE EVENT DATE: 20230905
